FAERS Safety Report 9759576 (Version 1)
Quarter: 2013Q4

REPORT INFORMATION
  Report Type: Spontaneous
  Country: US (occurrence: US)
  Receive Date: 20131216
  Receipt Date: 20131216
  Transmission Date: 20140711
  Serious: No
  Sender: FDA-Public Use
  Company Number: US-GILEAD-2010-0028047

PATIENT
  Sex: Female

DRUGS (18)
  1. LETAIRIS [Suspect]
     Indication: PULMONARY ARTERIAL HYPERTENSION
     Route: 048
     Dates: start: 20080709
  2. COUMADIN [Concomitant]
  3. LASIX [Concomitant]
  4. CARVEDILOL [Concomitant]
  5. ASTELIN [Concomitant]
  6. NASACORT [Concomitant]
  7. ALLEGRA [Concomitant]
  8. CIPROFLOXACIN [Concomitant]
  9. PEPCID [Concomitant]
  10. NEXIUM [Concomitant]
  11. FLEXERIL [Concomitant]
  12. PATANOL [Concomitant]
  13. NEURONTIN [Concomitant]
  14. MOTRIN [Concomitant]
  15. LIDODERM [Concomitant]
  16. LORCET [Concomitant]
  17. POTASSIUM CHLORIDE [Concomitant]
  18. GLUCOSAMINE CHONDROITIN [Concomitant]

REACTIONS (1)
  - Burning sensation [Unknown]
